FAERS Safety Report 13046112 (Version 1)
Quarter: 2016Q4

REPORT INFORMATION
  Report Type: Spontaneous
  Country: US (occurrence: US)
  Receive Date: 20161220
  Receipt Date: 20161220
  Transmission Date: 20170207
  Serious: Yes (Hospitalization)
  Sender: FDA-Public Use
  Company Number: US-FRESENIUS KABI-FK201609899

PATIENT
  Age: 14 Year
  Sex: Male

DRUGS (2)
  1. CYTARABINE INJECTION [Suspect]
     Active Substance: CYTARABINE
     Indication: ACUTE MYELOID LEUKAEMIA
     Route: 042
     Dates: start: 20161128, end: 20161201
  2. CYTARABINE INJECTION [Suspect]
     Active Substance: CYTARABINE
     Route: 042
     Dates: start: 20161202, end: 20161204

REACTIONS (1)
  - Hypersensitivity [Recovering/Resolving]
